FAERS Safety Report 5706073-8 (Version None)
Quarter: 2008Q2

REPORT INFORMATION
  Report Type: 
  Country: None (occurrence: None)
  Receive Date: 20080415
  Receipt Date: 20080403
  Transmission Date: 20081010
  Serious: Yes (Other)
  Sender: FDA-Public Use
  Company Number: DK-PFIZER INC-2008030426

PATIENT
  Sex: Female
  Weight: 61 kg

DRUGS (5)
  1. VARENICLINE TABLETS [Suspect]
     Indication: EX-SMOKER
     Route: 048
     Dates: start: 20071102, end: 20080131
  2. SIMVASTATIN [Concomitant]
  3. ALENDRONIC ACID [Concomitant]
  4. ACETYLSALICYLIC ACID SRT [Concomitant]
  5. CALCIUM COMPOUNDS [Concomitant]

REACTIONS (5)
  - FATIGUE [None]
  - INCOHERENT [None]
  - MEMORY IMPAIRMENT [None]
  - MOOD SWINGS [None]
  - SLEEP DISORDER [None]
